FAERS Safety Report 9518983 (Version 1)
Quarter: 2013Q3

REPORT INFORMATION
  Report Type: Spontaneous
  Country: GB (occurrence: GB)
  Receive Date: 20130912
  Receipt Date: 20130912
  Transmission Date: 20140515
  Serious: Yes (Other)
  Sender: FDA-Public Use
  Company Number: GB-ELI_LILLY_AND_COMPANY-GB201309000319

PATIENT
  Age: 62 Year
  Sex: Female
  Weight: 76.2 kg

DRUGS (2)
  1. PROZAC [Suspect]
     Indication: DEPRESSION
     Dosage: 20 MG, UNKNOWN
     Route: 048
  2. LYRICA [Concomitant]
     Dosage: 1 DF, UNKNOWN
     Dates: start: 201008

REACTIONS (1)
  - Vision blurred [Recovered/Resolved]
